FAERS Safety Report 5233574-1 (Version None)
Quarter: 2007Q1

REPORT INFORMATION
  Report Type: 
  Country: None (occurrence: None)
  Receive Date: 20070208
  Receipt Date: 20070131
  Transmission Date: 20070707
  Serious: Yes (Hospitalization)
  Sender: FDA-Public Use
  Company Number: US-AMGEN-US209395

PATIENT
  Sex: Female

DRUGS (6)
  1. EPOGEN [Suspect]
     Indication: RENAL FAILURE CHRONIC
     Route: 065
     Dates: start: 20040101
  2. SENSIPAR [Concomitant]
     Indication: HYPERPARATHYROIDISM SECONDARY
     Route: 048
  3. TRICOR [Concomitant]
     Route: 048
  4. LISINOPRIL [Concomitant]
     Route: 048
  5. NEPHROCAPS [Concomitant]
     Route: 048
  6. RENAGEL [Concomitant]
     Route: 048

REACTIONS (1)
  - APLASIA PURE RED CELL [None]
